FAERS Safety Report 9527998 (Version 1)
Quarter: 2013Q3

REPORT INFORMATION
  Report Type: Spontaneous
  Country: None (occurrence: None)
  Receive Date: 20130913
  Receipt Date: 20130913
  Transmission Date: 20140515
  Serious: Yes (Hospitalization)
  Sender: FDA-Public Use
  Company Number: 2013/181

PATIENT
  Age: 27 Year
  Sex: Female
  Weight: 104 kg

DRUGS (1)
  1. CEPHALEXIN [Suspect]
     Indication: URINARY TRACT INFECTION
     Route: 048
     Dates: start: 20130820, end: 20130821

REACTIONS (4)
  - Face oedema [None]
  - Headache [None]
  - Nausea [None]
  - Paraesthesia oral [None]
